FAERS Safety Report 6485751-X (Version None)
Quarter: 2009Q4

REPORT INFORMATION
  Report Type: 
  Country: None (occurrence: None)
  Receive Date: 20091204
  Receipt Date: 20091123
  Transmission Date: 20100525
  Serious: Yes (Other)
  Sender: FDA-Public Use
  Company Number: VAL_00334_2009

PATIENT
  Sex: Female

DRUGS (1)
  1. BUMEX [Suspect]
     Indication: DRUG USE FOR UNKNOWN INDICATION
     Dosage: DF

REACTIONS (3)
  - HALLUCINATION [None]
  - MEMORY IMPAIRMENT [None]
  - TOXIC ENCEPHALOPATHY [None]
